FAERS Safety Report 4354964-5 (Version None)
Quarter: 2004Q2

REPORT INFORMATION
  Report Type: 
  Country: None (occurrence: None)
  Receive Date: 20040504
  Receipt Date: 20040421
  Transmission Date: 20050107
  Serious: Yes (Other)
  Sender: FDA-Public Use
  Company Number: HQWYE572722APR04

PATIENT
  Sex: Female

DRUGS (1)
  1. EFFEXXOR XR (VENLAFAXINE HYDROCHLORIDE, CAPSULE, EXTENDED RELEASE) [Suspect]
     Dosage: 37.5 MG 1X PER 1 DAY ORAL
     Route: 048

REACTIONS (1)
  - CORNEAL DYSTROPHY [None]
